FAERS Safety Report 6700872-1 (Version None)
Quarter: 2010Q2

REPORT INFORMATION
  Report Type: 
  Country: None (occurrence: None)
  Receive Date: 20100428
  Receipt Date: 20100421
  Transmission Date: 20101027
  Serious: Yes (Hospitalization)
  Sender: FDA-Public Use
  Company Number: GR-WYE-G06005910

PATIENT
  Sex: Male
  Weight: 62 kg

DRUGS (14)
  1. TEMSIROLIMUS [Suspect]
     Indication: PANCREATIC CARCINOMA
     Route: 042
     Dates: start: 20091216, end: 20100311
  2. TEMSIROLIMUS [Suspect]
     Route: 042
     Dates: start: 20100324
  3. ZOFRON [Concomitant]
     Indication: PREMEDICATION
     Route: 042
     Dates: start: 20091216
  4. ZANTAC [Concomitant]
     Indication: PREMEDICATION
     Route: 042
     Dates: start: 20091216
  5. FENISTIL [Concomitant]
     Indication: PREMEDICATION
     Route: 042
     Dates: start: 20091216
  6. ALLOPURINOL [Concomitant]
     Indication: HYPERURICAEMIA
     Dosage: 100MG ONCE DAILY
     Route: 048
     Dates: start: 20050615
  7. ARANESP [Concomitant]
     Route: 042
     Dates: start: 20091216
  8. VENOFER [Concomitant]
     Route: 042
     Dates: start: 20091216
  9. SALOSPIR [Concomitant]
     Indication: CORONARY ARTERY DISEASE
     Dosage: 1 TABLET DAILY
     Route: 048
     Dates: start: 19950615, end: 20100121
  10. CODEINE SULFATE [Concomitant]
     Dosage: (500+30)MG OCCASSIOANLLY
     Route: 048
     Dates: start: 20091230
  11. GLUCOPHAGE [Concomitant]
     Indication: DIABETES MELLITUS
     Dosage: 850MG TWICE DAILY
     Route: 048
     Dates: start: 20070615
  12. GEMZAR [Suspect]
     Indication: PANCREATIC CARCINOMA
     Route: 042
     Dates: start: 20091216, end: 20100311
  13. GEMZAR [Suspect]
     Route: 042
     Dates: start: 20100324
  14. DEXAMETHASONE [Concomitant]
     Indication: PREMEDICATION
     Route: 042
     Dates: start: 20091216

REACTIONS (1)
  - NEUTROPENIA [None]
